FAERS Safety Report 7131048-4 (Version None)
Quarter: 2010Q4

REPORT INFORMATION
  Report Type: 
  Country: None (occurrence: None)
  Receive Date: 20101101
  Receipt Date: 20100824
  Transmission Date: 20110411
  Serious: Yes (Hospitalization)
  Sender: FDA-Public Use
  Company Number: AMAG201000332

PATIENT
  Age: 93 Year
  Sex: Male
  Weight: 62.6 kg

DRUGS (9)
  1. FERAHEME [Suspect]
     Indication: IRON DEFICIENCY ANAEMIA
     Dosage: 510 MG, SINGLE, INTRAVENOUS ; 510 MG, SINGLE, INTRAVENOUS
     Route: 042
     Dates: start: 20100805, end: 20100805
  2. FERAHEME [Suspect]
     Indication: IRON DEFICIENCY ANAEMIA
     Dosage: 510 MG, SINGLE, INTRAVENOUS ; 510 MG, SINGLE, INTRAVENOUS
     Route: 042
     Dates: start: 20100812, end: 20100812
  3. CYANOCOBALAMIN [Concomitant]
  4. MULTIVITAMIN [Concomitant]
  5. FELODIPINE [Concomitant]
  6. DOXAZOSIN (DOXAZOSIN MESILATE) [Concomitant]
  7. SERTRALINE HYDROCHLORIDE [Concomitant]
  8. NORVASC [Concomitant]
  9. ACETAMINOPHEN [Concomitant]

REACTIONS (7)
  - ATRIOVENTRICULAR BLOCK FIRST DEGREE [None]
  - BACK PAIN [None]
  - BRADYCARDIA [None]
  - HYPERTENSION [None]
  - OXYGEN SATURATION DECREASED [None]
  - SCREAMING [None]
  - VOMITING [None]
